FAERS Safety Report 9854031 (Version 2)
Quarter: 2014Q3

REPORT INFORMATION
  Report Type: Spontaneous
  Country: US (occurrence: US)
  Receive Date: 20140129
  Receipt Date: 20140930
  Transmission Date: 20150326
  Serious: Yes (Hospitalization)
  Sender: FDA-Public Use
  Company Number: US-009507513-1401USA013569

PATIENT
  Sex: Female

DRUGS (1)
  1. NUVARING [Suspect]
     Active Substance: ETHINYL ESTRADIOL\ETONOGESTREL
     Indication: PRODUCT USED FOR UNKNOWN INDICATION
     Dosage: UNK
     Route: 067
     Dates: start: 2008

REACTIONS (6)
  - Asthma [Unknown]
  - Wisdom teeth removal [Unknown]
  - Vomiting [Unknown]
  - Nausea [Unknown]
  - Ear infection [Unknown]
  - Transverse sinus thrombosis [Unknown]

NARRATIVE: CASE EVENT DATE: 20110730
